FAERS Safety Report 22656708 (Version 1)
Quarter: 2023Q2

REPORT INFORMATION
  Report Type: Report from Study
  Country: US (occurrence: US)
  Receive Date: 20230630
  Receipt Date: 20230630
  Transmission Date: 20230721
  Serious: Yes (Hospitalization, Other)
  Sender: FDA-Public Use
  Company Number: US-002147023-NVSC2023US146439

PATIENT
  Sex: Female

DRUGS (1)
  1. KESIMPTA [Suspect]
     Active Substance: OFATUMUMAB
     Indication: Product used for unknown indication
     Dosage: UNK
     Route: 065

REACTIONS (9)
  - Neuroendocrine tumour [Unknown]
  - Crohn^s disease [Unknown]
  - Coeliac disease [Unknown]
  - Gastrointestinal haemorrhage [Unknown]
  - Seizure [Unknown]
  - Diabetes mellitus [Unknown]
  - Rectal ulcer [Unknown]
  - Hiatus hernia [Unknown]
  - Gastrointestinal pain [Unknown]
